FAERS Safety Report 19878712 (Version 1)
Quarter: 2021Q3

REPORT INFORMATION
  Report Type: Spontaneous
  Country: None (occurrence: US)
  Receive Date: 20210923
  Receipt Date: 20210923
  Transmission Date: 20211014
  Serious: No
  Sender: FDA-Public Use
  Company Number: US-NEXGEN PHARMA, INC.-2118740

PATIENT
  Age: 39 Year
  Sex: Female

DRUGS (3)
  1. CHENODAL [Suspect]
     Active Substance: CHENODIOL
     Indication: CHOLELITHIASIS
     Route: 048
     Dates: start: 20210421
  2. STEROID?UNSPECIFIED [Concomitant]
     Route: 065
  3. BENADRYL [Concomitant]
     Active Substance: DIPHENHYDRAMINE HYDROCHLORIDE
     Route: 065

REACTIONS (1)
  - Urticaria [Unknown]

NARRATIVE: CASE EVENT DATE: 202106
